FAERS Safety Report 4471945-1 (Version None)
Quarter: 2004Q4

REPORT INFORMATION
  Report Type: 
  Country: None (occurrence: None)
  Receive Date: 20041007
  Receipt Date: 20030303
  Transmission Date: 20050328
  Serious: Yes (Other)
  Sender: FDA-Public Use
  Company Number: 2003-DE-00864ZA

PATIENT
  Age: 62 Year
  Sex: Male

DRUGS (1)
  1. TIOTROPIUM-BROMIDE(TIOTROPIUM BROMIDE) (KAI) (TIOTROPIUM) [Suspect]
     Indication: CHRONIC OBSTRUCTIVE AIRWAYS DISEASE
     Dosage: 18 MCG (18 MCG, RT); IH
     Route: 055

REACTIONS (1)
  - BRONCHOSPASM [None]
